FAERS Safety Report 18202282 (Version 1)
Quarter: 2020Q3

REPORT INFORMATION
  Report Type: Spontaneous
  Country: US (occurrence: US)
  Receive Date: 20200827
  Receipt Date: 20200827
  Transmission Date: 20201103
  Serious: No
  Sender: FDA-Public Use
  Company Number: None

PATIENT

DRUGS (2)
  1. BUMETANIDE BUMETANIDE [Suspect]
     Active Substance: BUMETANIDE
     Route: 048
  2. BENZTROPINE. [Suspect]
     Active Substance: BENZTROPINE
     Route: 048

REACTIONS (6)
  - Product name confusion [None]
  - Wrong product administered [None]
  - Hypotonia [None]
  - Urine output decreased [None]
  - Product storage error [None]
  - Product dispensing error [None]
